FAERS Safety Report 6579801-X (Version None)
Quarter: 2010Q1

REPORT INFORMATION
  Report Type: 
  Country: None (occurrence: None)
  Receive Date: 20100212
  Receipt Date: 20090112
  Transmission Date: 20100710
  Serious: Yes (Hospitalization)
  Sender: FDA-Public Use
  Company Number: DE-WYE-H13441710

PATIENT
  Age: 81 Year
  Sex: Male

DRUGS (5)
  1. CORDAREX [Suspect]
     Indication: ARRHYTHMIA
     Route: 048
  2. ISCOVER [Suspect]
     Indication: CORONARY ARTERY DISEASE
     Route: 048
     Dates: start: 20070301, end: 20080813
  3. ISCOVER [Suspect]
     Route: 048
     Dates: start: 20080815
  4. ACTRAPID HUMAN [Suspect]
     Indication: TYPE 2 DIABETES MELLITUS
     Dosage: 4 UNIT EVERY 1 DAY
     Route: 058
     Dates: start: 20070401
  5. RAMIPRIL [Suspect]
     Indication: HYPERTENSION
     Route: 048

REACTIONS (3)
  - GASTROINTESTINAL HAEMORRHAGE [None]
  - HAEMORRHAGIC EROSIVE GASTRITIS [None]
  - HAEMORRHOIDAL HAEMORRHAGE [None]
